FAERS Safety Report 12635759 (Version 1)
Quarter: 2016Q3

REPORT INFORMATION
  Report Type: Spontaneous
  Country: US (occurrence: US)
  Receive Date: 20160809
  Receipt Date: 20160809
  Transmission Date: 20161109
  Serious: No
  Sender: FDA-Public Use
  Company Number: US-PFIZER INC-2016345075

PATIENT
  Age: 67 Year
  Sex: Female
  Weight: 86 kg

DRUGS (7)
  1. VITAMIN B COMPLEX [Concomitant]
     Active Substance: CYANOCOBALAMIN\DEXPANTHENOL\NIACINAMIDE\PYRIDOXINE HYDROCHLORIDE\RIBOFLAVIN 5^-PHOSPHATE SODIUM\THIAMINE HYDROCHLORIDE\VITAMIN B COMPLEX
     Dosage: UNK
     Dates: start: 2006
  2. LOSARTAN AND HYDROCHLOROTHIAZIDE [Concomitant]
     Active Substance: HYDROCHLOROTHIAZIDE\LOSARTAN POTASSIUM
     Indication: HYPERTENSION
     Dosage: UNK, 1X/DAY,(HYDROCHLOROTHIAZIDE 125MG, LOSARTAN POTASSIUM 100MG)
     Route: 048
     Dates: start: 2014
  3. GABAPENTIN. [Concomitant]
     Active Substance: GABAPENTIN
     Indication: SPINAL COLUMN STENOSIS
     Dosage: 400 UG, 4X/DAY, (ONE IN MORNING AND THREE IN THE EVENING BY MOUTH)
     Route: 048
     Dates: start: 2006
  4. CELECOXIB. [Concomitant]
     Active Substance: CELECOXIB
     Indication: ARTHRITIS
     Dosage: 200 MG, 1X/DAY
     Route: 048
     Dates: start: 2013
  5. LEVOXYL [Suspect]
     Active Substance: LEVOTHYROXINE SODIUM
     Indication: HYPOTHYROIDISM
     Dosage: 150 UG, 1X/DAY
     Route: 048
  6. CAFFEINE. [Interacting]
     Active Substance: CAFFEINE
     Dosage: UNK
  7. LEVOXYL [Interacting]
     Active Substance: LEVOTHYROXINE SODIUM
     Dosage: 137 UG, UNK

REACTIONS (8)
  - Tri-iodothyronine free abnormal [Not Recovered/Not Resolved]
  - Weight decreased [Unknown]
  - Potentiating drug interaction [Unknown]
  - Blood thyroid stimulating hormone decreased [Unknown]
  - Drug ineffective [Not Recovered/Not Resolved]
  - Blood thyroid stimulating hormone abnormal [Not Recovered/Not Resolved]
  - Thyroxine free abnormal [Not Recovered/Not Resolved]
  - Thyroxine increased [Unknown]

NARRATIVE: CASE EVENT DATE: 20160628
